FAERS Safety Report 8784301 (Version 1)
Quarter: 2012Q4

REPORT INFORMATION
  Report Type: Spontaneous
  Country: US (occurrence: None)
  Receive Date: 20120905
  Receipt Date: 20120905
  Transmission Date: 20130627
  Serious: Yes (Disabling)
  Sender: FDA-Public Use
  Company Number: None

PATIENT
  Age: 42 Month
  Sex: Female

DRUGS (1)
  1. LEVOFLOXACIN [Suspect]
     Indication: CHRONIC SINUSITIS
     Route: 048
     Dates: start: 20120828, end: 20120829

REACTIONS (3)
  - Muscle disorder [None]
  - Discomfort [None]
  - Pain [None]
